FAERS Safety Report 5132186-8 (Version None)
Quarter: 2006Q4

REPORT INFORMATION
  Report Type: 
  Country: None (occurrence: None)
  Receive Date: 20061017
  Receipt Date: 20061011
  Transmission Date: 20070319
  Serious: No
  Sender: FDA-Public Use
  Company Number: S06-USA-04252-01

PATIENT
  Age: 61 Year
  Sex: Male
  Weight: 97.977 kg

DRUGS (2)
  1. LEXAPRO [Suspect]
  2. REMICADE [Suspect]
     Indication: PSORIATIC ARTHROPATHY
     Dates: start: 20060702

REACTIONS (2)
  - BACK DISORDER [None]
  - PAIN [None]
